FAERS Safety Report 24892841 (Version 1)
Quarter: 2025Q1

REPORT INFORMATION
  Report Type: Spontaneous
  Country: US (occurrence: US)
  Receive Date: 20250128
  Receipt Date: 20250128
  Transmission Date: 20250409
  Serious: No
  Sender: BRISTOL-MYERS SQUIBB COMPANY
  Company Number: US-BRISTOL-MYERS SQUIBB COMPANY-2025-012636

PATIENT
  Age: 85 Year
  Sex: Female

DRUGS (2)
  1. NIVOLUMAB [Suspect]
     Active Substance: NIVOLUMAB
     Indication: Pancreatic carcinoma
  2. CABIRALIZUMAB [Suspect]
     Active Substance: CABIRALIZUMAB
     Indication: Pancreatic carcinoma

REACTIONS (2)
  - Keratoacanthoma [Recovered/Resolved]
  - Off label use [Unknown]
